FAERS Safety Report 9419845 (Version 1)
Quarter: 2013Q3

REPORT INFORMATION
  Report Type: Spontaneous
  Country: US (occurrence: US)
  Receive Date: 20130725
  Receipt Date: 20130725
  Transmission Date: 20140515
  Serious: Yes (Life-Threatening, Hospitalization, Other)
  Sender: FDA-Public Use
  Company Number: US-COVIDIEN/TYCO HEALTHCARE/MALLINCKRODT-T201303747

PATIENT
  Sex: Male

DRUGS (2)
  1. GABLOFEN [Suspect]
     Indication: MUSCLE SPASTICITY
     Dosage: 1691 MCG/DAY
     Route: 037
  2. GABLOFEN [Suspect]
     Dosage: 500MCG/ML, AT A DOSE OF
     Route: 037

REACTIONS (5)
  - Respiratory arrest [Recovered/Resolved]
  - Shock [Recovered/Resolved]
  - Red man syndrome [Recovered/Resolved]
  - Nephrolithiasis [Unknown]
  - Device failure [Recovered/Resolved]
